FAERS Safety Report 5003030-4 (Version None)
Quarter: 2006Q2

REPORT INFORMATION
  Report Type: 
  Country: None (occurrence: None)
  Receive Date: 20060516
  Receipt Date: 20060307
  Transmission Date: 20061013
  Serious: Yes (Hospitalization)
  Sender: FDA-Public Use
  Company Number: US-MERCK-0603USA01340

PATIENT
  Age: 65 Year
  Sex: Female
  Weight: 105 kg

DRUGS (12)
  1. VIOXX [Suspect]
     Route: 048
     Dates: start: 20010701, end: 20040401
  2. CLARINEX [Concomitant]
     Route: 065
  3. PREVACID [Concomitant]
     Route: 065
  4. AMBIEN [Concomitant]
     Route: 065
  5. ADVAIR DISKUS 100/50 [Concomitant]
     Route: 065
  6. FOSAMAX [Concomitant]
     Route: 065
  7. SINGULAIR [Concomitant]
     Route: 065
  8. ALPRAZOLAM [Concomitant]
     Route: 065
  9. THEOPHYLLINE [Concomitant]
     Route: 065
  10. METOPROLOL [Concomitant]
     Route: 065
  11. CLIMARA [Concomitant]
     Route: 065
  12. LEVOTHROID [Concomitant]
     Route: 065

REACTIONS (4)
  - ANXIETY [None]
  - EMOTIONAL DISORDER [None]
  - GENERAL PHYSICAL HEALTH DETERIORATION [None]
  - MYOCARDIAL INFARCTION [None]
